FAERS Safety Report 8160366-6 (Version None)
Quarter: 2012Q1

REPORT INFORMATION
  Report Type: 
  Country: None (occurrence: None)
  Receive Date: 20120223
  Receipt Date: 20120216
  Transmission Date: 20120608
  Serious: Yes (Hospitalization)
  Sender: FDA-Public Use
  Company Number: IT-ABBOTT-12P-083-0904913-00

PATIENT
  Sex: Female

DRUGS (2)
  1. BECLOMETHASONE DIPROPIONATE [Suspect]
     Indication: OROPHARYNGEAL PAIN
     Dosage: 1.6 MG DAILY
     Route: 055
     Dates: start: 20110321, end: 20110328
  2. CLARITHROMYCIN [Suspect]
     Indication: OROPHARYNGEAL PAIN
     Dosage: 500 MG DAILY
     Route: 048
     Dates: start: 20110327, end: 20110328

REACTIONS (2)
  - TONGUE OEDEMA [None]
  - LOCALISED OEDEMA [None]
